FAERS Safety Report 5685286-8 (Version None)
Quarter: 2008Q1

REPORT INFORMATION
  Report Type: 
  Country: None (occurrence: None)
  Receive Date: 20080328
  Receipt Date: 20080318
  Transmission Date: 20080703
  Serious: Yes (Disabling)
  Sender: FDA-Public Use
  Company Number: IE-PFIZER INC-2008017454

PATIENT
  Sex: Male

DRUGS (1)
  1. CHAMPIX [Suspect]
     Route: 048

REACTIONS (1)
  - VISUAL ACUITY REDUCED [None]
